FAERS Safety Report 4985099-6 (Version None)
Quarter: 2006Q1

REPORT INFORMATION
  Report Type: 
  Country: None (occurrence: None)
  Receive Date: 20060303
  Receipt Date: 20020501
  Transmission Date: 20060701
  Serious: Yes (Hospitalization)
  Sender: FDA-Public Use
  Company Number: PHEH2002US04120

PATIENT
  Age: 65 Year
  Sex: Male

DRUGS (5)
  1. NEORAL [Suspect]
     Indication: HEART TRANSPLANT
     Dosage: SEE IMAGE
     Route: 048
     Dates: start: 19991225, end: 20001001
  2. NEORAL [Suspect]
     Indication: HEART TRANSPLANT
     Dosage: SEE IMAGE
     Route: 048
     Dates: start: 20010913
  3. PREDNISONE TAB [Concomitant]
  4. BACTRIM [Concomitant]
  5. TRENTAL ^ALBERT-ROUSSEL^ (PENTOXIFYLLINE) [Concomitant]

REACTIONS (7)
  - BLOOD TESTOSTERONE DECREASED [None]
  - EJACULATION FAILURE [None]
  - FATIGUE [None]
  - HYPERTENSION [None]
  - PSYCHOSEXUAL DISORDER [None]
  - SEXUAL DYSFUNCTION [None]
  - TRANSPLANT REJECTION [None]
